FAERS Safety Report 10343104 (Version 1)
Quarter: 2014Q3

REPORT INFORMATION
  Report Type: Spontaneous
  Country: TW (occurrence: TW)
  Receive Date: 20140725
  Receipt Date: 20140725
  Transmission Date: 20150326
  Serious: Yes (Other)
  Sender: FDA-Public Use
  Company Number: TW-BAYER-2014-105361

PATIENT
  Age: 58 Year
  Sex: Male

DRUGS (2)
  1. ENTECAVIR [Concomitant]
     Active Substance: ENTECAVIR
     Indication: HEPATIC CIRRHOSIS
     Dosage: 0.5 MG DAILY
  2. NEXAVAR [Suspect]
     Active Substance: SORAFENIB
     Indication: HEPATOCELLULAR CARCINOMA
     Dosage: 200 MG/TABLETS, 1-2 TABLETS DAILY
     Route: 048
     Dates: start: 20110722, end: 20111020

REACTIONS (2)
  - Treatment failure [None]
  - Hepatocellular carcinoma [None]

NARRATIVE: CASE EVENT DATE: 20111020
